FAERS Safety Report 6695377-0 (Version None)
Quarter: 2010Q2

REPORT INFORMATION
  Report Type: 
  Country: None (occurrence: None)
  Receive Date: 20100423
  Receipt Date: 20100423
  Transmission Date: 20101027
  Serious: Yes (Other)
  Sender: FDA-Public Use
  Company Number: None

PATIENT
  Sex: Female
  Weight: 70.3075 kg

DRUGS (2)
  1. LAMOTRIGINE [Suspect]
     Indication: EPILEPSY
     Dosage: 100 MG IN AM ORAL } 5 YEARS
     Route: 048
  2. LAMOTRIGINE [Suspect]
     Dosage: 200MG IN PM ORAL
     Route: 048

REACTIONS (1)
  - CONVULSION [None]
